FAERS Safety Report 10207168 (Version 1)
Quarter: 2014Q2

REPORT INFORMATION
  Report Type: Spontaneous
  Country: HR (occurrence: HR)
  Receive Date: 20140530
  Receipt Date: 20140530
  Transmission Date: 20141212
  Serious: Yes (Other)
  Sender: FDA-Public Use
  Company Number: HR-TEVA-483550ISR

PATIENT
  Age: 74 Year
  Sex: Female
  Weight: 70 kg

DRUGS (4)
  1. INDAPAMID SR [Suspect]
     Dosage: 1.5 MILLIGRAM DAILY;
     Route: 048
     Dates: start: 20140226, end: 20140407
  2. FLUVASCOL [Suspect]
     Dosage: 80 MILLIGRAM DAILY;
     Route: 048
     Dates: start: 20140226, end: 20140407
  3. LYBROL [Concomitant]
     Dosage: 2.5 MILLIGRAM DAILY;
     Route: 048
  4. TRANDOLAPRIL PHARMAS [Concomitant]
     Dosage: 2 MILLIGRAM DAILY;
     Route: 048

REACTIONS (5)
  - Hepatic lesion [Recovered/Resolved]
  - Alanine aminotransferase increased [Recovered/Resolved]
  - Blood alkaline phosphatase increased [Recovered/Resolved]
  - Gamma-glutamyltransferase increased [Recovered/Resolved]
  - Aspartate aminotransferase increased [Recovered/Resolved]
